FAERS Safety Report 9210488 (Version 1)
Quarter: 2013Q2

REPORT INFORMATION
  Report Type: Spontaneous
  Country: US (occurrence: US)
  Receive Date: 20130404
  Receipt Date: 20130404
  Transmission Date: 20140414
  Serious: No
  Sender: FDA-Public Use
  Company Number: US-PFIZER INC-2013104637

PATIENT
  Age: 53 Year
  Sex: Male
  Weight: 97.51 kg

DRUGS (3)
  1. ADVIL [Suspect]
     Indication: BACK PAIN
     Dosage: 200 MG, THREE TIMES A DAY
     Route: 048
     Dates: start: 20130324, end: 20130331
  2. ADVIL [Suspect]
     Indication: NECK PAIN
  3. TYLENOL [Concomitant]
     Indication: PAIN
     Dosage: UNK

REACTIONS (1)
  - Drug ineffective [Unknown]
